FAERS Safety Report 9992468 (Version 2)
Quarter: 2014Q2

REPORT INFORMATION
  Report Type: Spontaneous
  Country: RU (occurrence: RU)
  Receive Date: 20140310
  Receipt Date: 20140424
  Transmission Date: 20141212
  Serious: Yes (Hospitalization)
  Sender: FDA-Public Use
  Company Number: RU-VIIV HEALTHCARE LIMITED-B0975211A

PATIENT
  Sex: Male

DRUGS (5)
  1. ZIAGEN [Suspect]
     Indication: HIV INFECTION
     Route: 065
     Dates: start: 2013
  2. KALETRA [Suspect]
     Indication: HIV INFECTION
     Route: 065
     Dates: start: 2013
  3. LAMIVUDINE-HIV [Suspect]
     Indication: HIV INFECTION
     Route: 065
     Dates: start: 2013
  4. ZIDOVUDINE [Suspect]
     Indication: HIV INFECTION
     Route: 065
  5. ANTIBIOTICS [Concomitant]

REACTIONS (7)
  - Pneumonia [Recovered/Resolved]
  - Nasopharyngitis [Recovered/Resolved]
  - Sinusitis [Recovered/Resolved]
  - Bronchitis [Recovered/Resolved]
  - Candida infection [Not Recovered/Not Resolved]
  - Neutrophil count decreased [Not Recovered/Not Resolved]
  - Herpes virus infection [Not Recovered/Not Resolved]
